FAERS Safety Report 8956614 (Version 1)
Quarter: 2012Q4

REPORT INFORMATION
  Report Type: 
  Country: US (occurrence: US)
  Receive Date: 20121210
  Receipt Date: 20121210
  Transmission Date: 20130627
  Serious: Yes (Other)
  Sender: FDA-Public Use
  Company Number: US-BAYER-2012-126940

PATIENT
  Age: 62 Year
  Sex: Male

DRUGS (1)
  1. NEXAVAR [Suspect]
     Indication: CARCINOMA HEPATOCELLULAR

REACTIONS (5)
  - Diabetes mellitus [None]
  - Hyperglycaemia [None]
  - Acute prerenal failure [None]
  - Nausea [None]
  - Vomiting [None]
